FAERS Safety Report 7036335-6 (Version None)
Quarter: 2010Q4

REPORT INFORMATION
  Report Type: 
  Country: None (occurrence: None)
  Receive Date: 20101008
  Receipt Date: 20100930
  Transmission Date: 20110411
  Serious: Yes (Death, Hospitalization)
  Sender: FDA-Public Use
  Company Number: US-AMGEN-KDL443165

PATIENT
  Sex: Male
  Weight: 79 kg

DRUGS (1)
  1. PROCRIT [Suspect]
     Indication: ANAEMIA
     Route: 058
     Dates: start: 20090101, end: 20090601

REACTIONS (6)
  - ANAEMIA [None]
  - CARDIOMYOPATHY [None]
  - HEPATIC CIRRHOSIS [None]
  - HERPES ZOSTER [None]
  - HOSPITALISATION [None]
  - RENAL FAILURE [None]
